FAERS Safety Report 6165073-7 (Version None)
Quarter: 2009Q2

REPORT INFORMATION
  Report Type: 
  Country: None (occurrence: None)
  Receive Date: 20090421
  Receipt Date: 20090421
  Transmission Date: 20091009
  Serious: Yes (Other)
  Sender: FDA-Public Use
  Company Number: None

PATIENT
  Sex: Female

DRUGS (2)
  1. RISPERIDONE [Suspect]
     Indication: BIPOLAR DISORDER
     Dosage: 2 MG, ORAL
     Route: 048
     Dates: start: 20090301
  2. LAMICTAL [Concomitant]

REACTIONS (4)
  - ARTHRALGIA [None]
  - EYE IRRITATION [None]
  - HEADACHE [None]
  - PRODUCT SUBSTITUTION ISSUE [None]
